FAERS Safety Report 15390216 (Version 1)
Quarter: 2018Q3

REPORT INFORMATION
  Report Type: Spontaneous
  Country: ES (occurrence: ES)
  Receive Date: 20180917
  Receipt Date: 20180917
  Transmission Date: 20181010
  Serious: Yes (Hospitalization)
  Sender: FDA-Public Use
  Company Number: PHHY2018ES100481

PATIENT
  Age: 48 Year
  Sex: Female

DRUGS (1)
  1. COSENTYX [Suspect]
     Active Substance: SECUKINUMAB
     Indication: SPONDYLITIS
     Dosage: 150 MG, QMO
     Route: 058
     Dates: start: 20170426, end: 20170628

REACTIONS (2)
  - Pyelonephritis [Recovered/Resolved]
  - Psoas abscess [Recovered/Resolved]

NARRATIVE: CASE EVENT DATE: 20170615
